FAERS Safety Report 10460553 (Version 2)
Quarter: 2014Q3

REPORT INFORMATION
  Report Type: Spontaneous
  Country: IT (occurrence: IT)
  Receive Date: 20140918
  Receipt Date: 20140923
  Transmission Date: 20150326
  Serious: Yes (Other)
  Sender: FDA-Public Use
  Company Number: IT-ROCHE-1463259

PATIENT
  Age: 37 Year
  Sex: Female

DRUGS (7)
  1. MABTHERA [Suspect]
     Active Substance: RITUXIMAB
     Indication: RHEUMATOID ARTHRITIS
     Dosage: THE CYCLE OF RITUXIMAB IS 6 MONTHS.
     Route: 042
     Dates: start: 20070202
  2. DIBASE [Concomitant]
     Active Substance: CHOLECALCIFEROL
  3. CELEBREX [Concomitant]
     Active Substance: CELECOXIB
  4. OMEPRAZOLE. [Concomitant]
     Active Substance: OMEPRAZOLE
  5. FOLINA [Concomitant]
     Active Substance: FOLIC ACID
  6. METHOTREXATE [Suspect]
     Active Substance: METHOTREXATE
     Indication: RHEUMATOID ARTHRITIS
     Route: 030
     Dates: start: 20030510
  7. CACIT VITAMINE D3 [Concomitant]
     Active Substance: CALCIUM CARBONATE\CHOLECALCIFEROL

REACTIONS (1)
  - Uterine polyp [Recovering/Resolving]

NARRATIVE: CASE EVENT DATE: 20140615
